FAERS Safety Report 4597921-6 (Version None)
Quarter: 2005Q1

REPORT INFORMATION
  Report Type: 
  Country: None (occurrence: None)
  Receive Date: 20050125
  Receipt Date: 20040830
  Transmission Date: 20050727
  Serious: No
  Sender: FDA-Public Use
  Company Number: USA040876846

PATIENT
  Age: 69 Year
  Sex: Female

DRUGS (4)
  1. FORTEO [Suspect]
     Indication: OSTEOPOROSIS
     Dosage: 20 UG DAY
     Dates: start: 20040501
  2. PROPOXYPHENE HCL AND ACETAMINOPHEN [Concomitant]
  3. DURAGESIC (FENTANYL) [Concomitant]
  4. OXYCODONE W/PARACETAMOL [Concomitant]

REACTIONS (4)
  - BACK PAIN [None]
  - EYELID PTOSIS [None]
  - NAUSEA [None]
  - VOMITING [None]
